FAERS Safety Report 5144992-4 (Version None)
Quarter: 2006Q4

REPORT INFORMATION
  Report Type: 
  Country: None (occurrence: None)
  Receive Date: 20061107
  Receipt Date: 20060705
  Transmission Date: 20070319
  Serious: Yes (Disabling)
  Sender: FDA-Public Use
  Company Number: US-BAYER-200614426BWH

PATIENT
  Age: 77 Year
  Sex: Female
  Weight: 60 kg

DRUGS (3)
  1. TRASYLOL [Suspect]
     Indication: HAEMORRHAGE CONTROL
     Dosage: UNIT DOSE: 2000000 KIU
     Route: 042
     Dates: start: 20060613, end: 20060613
  2. TRASYLOL [Suspect]
     Dosage: UNIT DOSE: 2000000 KIU
     Route: 042
     Dates: start: 20060613, end: 20060613
  3. VANCOMYCIN [Suspect]
     Indication: INFECTION PROPHYLAXIS
     Route: 042

REACTIONS (2)
  - HEARING IMPAIRED [None]
  - OTOTOXICITY [None]
